FAERS Safety Report 7691315-2 (Version None)
Quarter: 2011Q3

REPORT INFORMATION
  Report Type: 
  Country: None (occurrence: None)
  Receive Date: 20110818
  Receipt Date: 20110808
  Transmission Date: 20111222
  Serious: Yes (Hospitalization)
  Sender: FDA-Public Use
  Company Number: DE-ROCHE-797181

PATIENT
  Sex: Male
  Weight: 94 kg

DRUGS (3)
  1. CAPECITABINE [Suspect]
     Indication: GASTRIC CANCER
     Route: 048
     Dates: start: 20110511
  2. CISPLATIN [Suspect]
     Indication: GASTRIC CANCER
     Route: 042
     Dates: start: 20110719
  3. CAPECITABINE [Suspect]
     Route: 048
     Dates: start: 20110719, end: 20110722

REACTIONS (3)
  - HEMIPLEGIA [None]
  - EMPHYSEMA [None]
  - CEREBROVASCULAR ACCIDENT [None]
